FAERS Safety Report 6172755-X (Version None)
Quarter: 2009Q2

REPORT INFORMATION
  Report Type: 
  Country: None (occurrence: None)
  Receive Date: 20090430
  Receipt Date: 20090422
  Transmission Date: 20091009
  Serious: Yes (Death)
  Sender: FDA-Public Use
  Company Number: US-BIOGENIDEC-2009BI012204

PATIENT
  Age: 45 Year
  Sex: Male

DRUGS (15)
  1. TYSABRI [Suspect]
     Indication: MULTIPLE SCLEROSIS
     Route: 042
     Dates: start: 20081126, end: 20081126
  2. FLOMAX [Concomitant]
  3. FENTANYL LOLLYPOPS [Concomitant]
     Indication: PAIN IN EXTREMITY
  4. FENTANYL LOLLYPOPS [Concomitant]
  5. LISINOPRIL [Concomitant]
  6. LYRICA [Concomitant]
  7. ZANAFLEX [Concomitant]
  8. ATIVAN [Concomitant]
     Indication: ANXIETY
  9. PERCOCET [Concomitant]
  10. NEXIUM [Concomitant]
     Route: 048
  11. LORTAB [Concomitant]
     Indication: PAIN IN EXTREMITY
  12. LORTAB [Concomitant]
  13. KLONOPIN [Concomitant]
  14. OXYCONTIN [Concomitant]
     Indication: PAIN IN EXTREMITY
     Route: 048
  15. OXYCONTIN [Concomitant]
     Route: 048

REACTIONS (1)
  - DEATH [None]
